FAERS Safety Report 25183522 (Version 2)
Quarter: 2025Q3

REPORT INFORMATION
  Report Type: Spontaneous
  Country: GB (occurrence: GB)
  Receive Date: 20250410
  Receipt Date: 20250910
  Transmission Date: 20251021
  Serious: Yes (Death, Other)
  Sender: ALKEM
  Company Number: None

PATIENT
  Age: 22 Year
  Sex: Male

DRUGS (3)
  1. FINASTERIDE [Suspect]
     Active Substance: FINASTERIDE
     Indication: Alopecia
     Route: 065
     Dates: start: 20240401
  2. BIOTIN [Suspect]
     Active Substance: BIOTIN
     Indication: Alopecia
     Route: 065
  3. MINOXIDIL [Suspect]
     Active Substance: MINOXIDIL
     Indication: Alopecia
     Route: 065

REACTIONS (3)
  - Completed suicide [Fatal]
  - Carditis [Unknown]
  - Tonsillitis [Unknown]

NARRATIVE: CASE EVENT DATE: 20240701
